FAERS Safety Report 9220159 (Version 2)
Quarter: 2013Q2

REPORT INFORMATION
  Report Type: Report from Study
  Country: US (occurrence: US)
  Receive Date: 20130409
  Receipt Date: 20130513
  Transmission Date: 20140414
  Serious: Yes (Death, Other)
  Sender: FDA-Public Use
  Company Number: US-ROCHE-1211782

PATIENT
  Sex: Female

DRUGS (1)
  1. CELLCEPT [Suspect]
     Indication: TRANSPLANT
     Route: 048

REACTIONS (3)
  - Cardiac arrest [Fatal]
  - Fall [Unknown]
  - Hip fracture [Unknown]
